FAERS Safety Report 11745910 (Version 1)
Quarter: 2015Q4

REPORT INFORMATION
  Report Type: Spontaneous
  Country: IT (occurrence: IT)
  Receive Date: 20151117
  Receipt Date: 20151117
  Transmission Date: 20160304
  Serious: Yes (Hospitalization)
  Sender: FDA-Public Use
  Company Number: IT-BD RX INC-2015BDR00628

PATIENT
  Age: 54 Year
  Sex: Female

DRUGS (2)
  1. METOCLOPRAMIDE. [Suspect]
     Active Substance: METOCLOPRAMIDE
     Indication: NAUSEA
     Dosage: UNK
  2. METOCLOPRAMIDE. [Suspect]
     Active Substance: METOCLOPRAMIDE
     Indication: VOMITING

REACTIONS (4)
  - Myocarditis [Recovered/Resolved]
  - Phaeochromocytoma [Recovered/Resolved]
  - Cardiac failure acute [Recovered/Resolved]
  - Cardiogenic shock [Recovered/Resolved]
